FAERS Safety Report 19410599 (Version 3)
Quarter: 2021Q3

REPORT INFORMATION
  Report Type: Report from Study
  Country: US (occurrence: US)
  Receive Date: 20210614
  Receipt Date: 20210725
  Transmission Date: 20211014
  Serious: Yes (Hospitalization)
  Sender: FDA-Public Use
  Company Number: NVSC2021US112668

PATIENT
  Age: 64 Year

DRUGS (2)
  1. ZYKADIA [Suspect]
     Active Substance: CERITINIB
     Indication: MALIGNANT MELANOMA
     Dosage: UNK
     Route: 048
  2. DOCETAXEL. [Suspect]
     Active Substance: DOCETAXEL
     Indication: MALIGNANT MELANOMA
     Dosage: UNK
     Route: 042

REACTIONS (8)
  - Hypoxia [Unknown]
  - Embolism [Recovered/Resolved]
  - Pneumonia [Unknown]
  - Dyspnoea [Unknown]
  - Hypoxia [Recovered/Resolved]
  - Anaemia [Unknown]
  - Dyspnoea [Recovered/Resolved]
  - Pneumonia [Recovered/Resolved]

NARRATIVE: CASE EVENT DATE: 20200524
